FAERS Safety Report 5353505-3 (Version None)
Quarter: 2007Q2

REPORT INFORMATION
  Report Type: 
  Country: None (occurrence: None)
  Receive Date: 20070612
  Receipt Date: 20070601
  Transmission Date: 20071010
  Serious: Yes (Death, Life-Threatening, Other)
  Sender: FDA-Public Use
  Company Number: GB-JNJFOC-20070600621

PATIENT
  Sex: Male
  Weight: 72 kg

DRUGS (6)
  1. REMICADE [Suspect]
     Indication: RHEUMATOID ARTHRITIS
     Route: 042
  2. METHOTREXATE [Concomitant]
  3. PREDNISOLONE [Concomitant]
  4. CO-PROXAMOL [Concomitant]
  5. KETOPROFEN [Concomitant]
  6. NIZATIDINE [Concomitant]

REACTIONS (1)
  - NON-SMALL CELL LUNG CANCER METASTATIC [None]
